FAERS Safety Report 8811240 (Version 1)
Quarter: 2012Q4

REPORT INFORMATION
  Report Type: Spontaneous
  Country: US (occurrence: None)
  Receive Date: 20120925
  Receipt Date: 20120925
  Transmission Date: 20130627
  Serious: Yes (Hospitalization, Disabling)
  Sender: FDA-Public Use
  Company Number: None

PATIENT
  Age: 64 Year
  Sex: Female
  Weight: 86.18 kg

DRUGS (1)
  1. ABILIFY [Suspect]
     Indication: UNEVALUABLE EVENT
     Dates: start: 20110401

REACTIONS (3)
  - Tardive dyskinesia [None]
  - Musculoskeletal stiffness [None]
  - Pain [None]
